FAERS Safety Report 11848772 (Version 1)
Quarter: 2015Q4

REPORT INFORMATION
  Report Type: Spontaneous
  Country: FR (occurrence: FR)
  Receive Date: 20151218
  Receipt Date: 20151218
  Transmission Date: 20160305
  Serious: Yes (Death)
  Sender: FDA-Public Use
  Company Number: FR-CIPLA LTD.-2015FR09355

PATIENT

DRUGS (6)
  1. DOCETAXEL. [Suspect]
     Active Substance: DOCETAXEL
     Indication: LARYNGEAL CANCER STAGE IV
     Dosage: 40 MG/M2, UNK, ON DAY 1
     Route: 065
  2. CISPLATIN. [Suspect]
     Active Substance: CISPLATIN
     Indication: LARYNGEAL CANCER STAGE IV
     Dosage: 40 MG/M2, UNK, ON DAY 1
     Route: 065
  3. FLUOROURACIL. [Suspect]
     Active Substance: FLUOROURACIL
     Indication: LARYNGEAL CANCER STAGE IV
     Dosage: 1000 MG/M2, QD, CONTINUOUS INFUSION OVER 46 H.
  4. FLUOROURACIL. [Suspect]
     Active Substance: FLUOROURACIL
     Dosage: 400 MG/M2, UNK
  5. CARBOPLATIN. [Suspect]
     Active Substance: CARBOPLATIN
     Indication: LARYNGEAL CANCER STAGE IV
     Dosage: AUC 2
     Route: 065
  6. FOLINIC ACID [Suspect]
     Active Substance: LEUCOVORIN
     Indication: LARYNGEAL CANCER STAGE IV
     Dosage: 400 MG/M2, UNK, FOR 2 H
     Route: 065

REACTIONS (2)
  - Subclavian artery thrombosis [Fatal]
  - Thyroid disorder [Fatal]
